FAERS Safety Report 17075660 (Version 1)
Quarter: 2019Q4

REPORT INFORMATION
  Report Type: Spontaneous
  Country: US (occurrence: US)
  Receive Date: 20191123
  Receipt Date: 20191123
  Transmission Date: 20200122
  Serious: Yes (Disabling, Other)
  Sender: FDA-Public Use
  Company Number: None

PATIENT
  Age: 5 Year
  Sex: Male

DRUGS (1)
  1. MMS CHLORINE DIOXIDE PROTOCOL, [Suspect]
     Active Substance: CHLORINE DIOXIDE
     Indication: AUTISM SPECTRUM DISORDER

REACTIONS (3)
  - Apparent life threatening event [None]
  - Weight decreased [None]
  - Behaviour disorder [None]

NARRATIVE: CASE EVENT DATE: 20191120
